FAERS Safety Report 9455544 (Version 2)
Quarter: 2013Q4

REPORT INFORMATION
  Report Type: Spontaneous
  Country: US (occurrence: US)
  Receive Date: 20130813
  Receipt Date: 20131003
  Transmission Date: 20140711
  Serious: No
  Sender: FDA-Public Use
  Company Number: US-PFIZER INC-2013233042

PATIENT
  Age: 66 Year
  Sex: Female
  Weight: 77.1 kg

DRUGS (1)
  1. LEVOTHYROXINE SODIUM [Suspect]
     Indication: HYPOTHYROIDISM
     Dosage: UNK
     Dates: start: 20080417, end: 2008

REACTIONS (1)
  - Dyspnoea [Recovered/Resolved]
